FAERS Safety Report 16992422 (Version 2)
Quarter: 2019Q4

REPORT INFORMATION
  Report Type: Spontaneous
  Country: FR (occurrence: FR)
  Receive Date: 20191105
  Receipt Date: 20191120
  Transmission Date: 20200122
  Serious: Yes (Other)
  Sender: FDA-Public Use
  Company Number: FR-AUROBINDO-AUR-APL-2019-070684

PATIENT
  Age: 25 Year
  Sex: Female

DRUGS (4)
  1. VALIUM [Suspect]
     Active Substance: DIAZEPAM
     Indication: ANXIETY DISORDER
     Dosage: UNK
     Route: 048
     Dates: start: 20190623
  2. LEPTICUR [Suspect]
     Active Substance: TROPATEPINE HYDROCHLORIDE
     Indication: PARKINSONISM
     Dosage: 10 MILLIGRAM
     Route: 048
     Dates: start: 2018
  3. NOZINAN [Suspect]
     Active Substance: LEVOMEPROMAZINE
     Indication: BEHAVIOUR DISORDER
     Dosage: UNK
     Route: 048
     Dates: start: 20190826
  4. VENLAFAXINE [Suspect]
     Active Substance: VENLAFAXINE HYDROCHLORIDE
     Indication: DEPRESSION
     Dosage: 150 MILLIGRAM
     Route: 048
     Dates: start: 20190710

REACTIONS (1)
  - Urinary retention [Recovered/Resolved]

NARRATIVE: CASE EVENT DATE: 201908
